FAERS Safety Report 20033163 (Version 1)
Quarter: 2021Q4

REPORT INFORMATION
  Report Type: Spontaneous
  Country: US (occurrence: US)
  Receive Date: 20211104
  Receipt Date: 20211104
  Transmission Date: 20220303
  Serious: Yes (Death, Life-Threatening, Other)
  Sender: FDA-Public Use
  Company Number: US-AMGEN-USASP2021169523

PATIENT

DRUGS (3)
  1. PEGFILGRASTIM [Suspect]
     Active Substance: PEGFILGRASTIM
     Indication: Prophylaxis
     Dosage: 6 MILLIGRAM
     Route: 058
  2. PACLITAXEL [Concomitant]
     Active Substance: PACLITAXEL
     Indication: Neoplasm malignant
     Dosage: 175 MILLIGRAM/SQ. METER, QD
     Route: 042
  3. CARBOPLATIN [Concomitant]
     Active Substance: CARBOPLATIN
     Indication: Neoplasm malignant
     Route: 042

REACTIONS (21)
  - Death [Fatal]
  - Neurotoxicity [Unknown]
  - Anaemia [Unknown]
  - Supraventricular tachycardia [Unknown]
  - Neuropathy peripheral [Unknown]
  - Neutropenia [Unknown]
  - Gastric cancer [Unknown]
  - Pneumonia [Unknown]
  - Fatigue [Unknown]
  - Febrile neutropenia [Unknown]
  - Hepatotoxicity [Unknown]
  - Dehydration [Unknown]
  - Peritoneal abscess [Unknown]
  - Infection [Unknown]
  - Confusional state [Unknown]
  - Vomiting [Unknown]
  - Nausea [Unknown]
  - Thrombocytopenia [Unknown]
  - Sudden death [Fatal]
  - Peripheral sensory neuropathy [Unknown]
  - Therapy partial responder [Unknown]
